FAERS Safety Report 8032860-X (Version None)
Quarter: 2011Q4

REPORT INFORMATION
  Report Type: 
  Country: None (occurrence: None)
  Receive Date: 20111229
  Receipt Date: 20111213
  Transmission Date: 20120403
  Serious: Yes (Hospitalization)
  Sender: FDA-Public Use
  Company Number: DSA_48095_2011

PATIENT
  Age: 75 Year
  Sex: Male

DRUGS (4)
  1. ENALAPRIL MALEATE [Suspect]
     Indication: PRODUCT USED FOR UNKNOWN INDICATION
     Dosage: 5 MG QD ORAL
     Route: 048
  2. WARFARIN SODIUM [Suspect]
     Indication: PRODUCT USED FOR UNKNOWN INDICATION
     Dosage: DF ORAL
     Route: 048
  3. LIVALO [Suspect]
     Indication: PRODUCT USED FOR UNKNOWN INDICATION
     Dosage: DF ORAL
     Route: 048
  4. PLAVIX [Suspect]
     Indication: PRODUCT USED FOR UNKNOWN INDICATION
     Dosage: DF ORAL
     Route: 048

REACTIONS (2)
  - INTERSTITIAL LUNG DISEASE [None]
  - LYMPHOCYTE STIMULATION TEST POSITIVE [None]
